FAERS Safety Report 23308929 (Version 2)
Quarter: 2024Q1

REPORT INFORMATION
  Report Type: Spontaneous
  Country: US (occurrence: None)
  Receive Date: 20231218
  Receipt Date: 20240103
  Transmission Date: 20240409
  Serious: No
  Sender: FDA-Public Use
  Company Number: 2023A264337

PATIENT

DRUGS (2)
  1. TEZSPIRE [Suspect]
     Active Substance: TEZEPELUMAB-EKKO
     Indication: Single umbilical artery
     Route: 058
  2. TEZSPIRE [Concomitant]
     Active Substance: TEZEPELUMAB-EKKO

REACTIONS (1)
  - Back pain [Unknown]
